FAERS Safety Report 12368808 (Version 1)
Quarter: 2016Q2

REPORT INFORMATION
  Report Type: Report from Study
  Country: VN (occurrence: VN)
  Receive Date: 20160513
  Receipt Date: 20160513
  Transmission Date: 20160815
  Serious: Yes (Death, Other)
  Sender: FDA-Public Use
  Company Number: VN-009507513-1605VNM006275

PATIENT
  Sex: Male

DRUGS (1)
  1. FOSAMAX [Suspect]
     Active Substance: ALENDRONATE SODIUM
     Dosage: ONCE WEEKLY FREQUENCY
     Route: 048
     Dates: start: 20140401, end: 20160301

REACTIONS (1)
  - Death [Fatal]
